FAERS Safety Report 6292198-8 (Version None)
Quarter: 2009Q3

REPORT INFORMATION
  Report Type: 
  Country: None (occurrence: None)
  Receive Date: 20090730
  Receipt Date: 20090730
  Transmission Date: 20100115
  Serious: Yes (Life-Threatening, Other)
  Sender: FDA-Public Use
  Company Number: None

PATIENT
  Sex: Female
  Weight: 0.72 kg

DRUGS (4)
  1. NEOPROFEN [Suspect]
     Indication: PATENT DUCTUS ARTERIOSUS
     Dosage: 3.5 MG ONCE IV
     Route: 042
     Dates: start: 20090608
  2. CAFFEINE INJ [Concomitant]
  3. TPN/FAT EMULSION [Concomitant]
  4. VITAMIN A [Concomitant]

REACTIONS (3)
  - NO THERAPEUTIC RESPONSE [None]
  - OXYGEN SATURATION DECREASED [None]
  - TRACHEAL HAEMORRHAGE [None]
